FAERS Safety Report 7079937 (Version 2)
Quarter: 2014Q2

REPORT INFORMATION
  Report Type: Spontaneous
  Country: US (occurrence: None)
  Receive Date: 20090805
  Receipt Date: 20140509
  Transmission Date: 20141212
  Serious: Yes (Hospitalization, Other)
  Sender: FDA-Public Use
  Company Number: 2009S1006048

PATIENT
  Age: 76 Year
  Sex: Female

DRUGS (4)
  1. FLEET PHOSPHO-SODA ORAL SALINE LAXATIVE, GINGER-LEMON FLAVOR (ORAL SOLUTION) [Suspect]
     Indication: COLONOSCOPY
     Dosage: TOTAL, ORAL
     Route: 048
     Dates: start: 200608, end: 200608
  2. GLIPIZIDE (GLIPIZIDE) [Concomitant]
  3. NORVOSAC (AMLODIPINE) [Concomitant]
  4. METOPROLOL (METOPROLOL) [Concomitant]

REACTIONS (25)
  - Renal failure chronic [None]
  - Refusal of treatment by patient [None]
  - Nausea [None]
  - Fatigue [None]
  - Renal failure chronic [None]
  - Abdominal distension [None]
  - Hernia [None]
  - Anaemia [None]
  - Decreased appetite [None]
  - Impaired gastric emptying [None]
  - Gastritis [None]
  - Intestinal obstruction [None]
  - Haemodialysis [None]
  - Renal tubular necrosis [None]
  - Tubulointerstitial nephritis [None]
  - Coronary artery disease [None]
  - Cardiomegaly [None]
  - Musculoskeletal pain [None]
  - Dizziness [None]
  - Presyncope [None]
  - Urinary retention [None]
  - Cerebral atrophy [None]
  - Cerebral arteriosclerosis [None]
  - Hypertension [None]
  - Acute myocardial infarction [None]
